FAERS Safety Report 6022547-7 (Version None)
Quarter: 2008Q4

REPORT INFORMATION
  Report Type: 
  Country: None (occurrence: None)
  Receive Date: 20081230
  Receipt Date: 20081223
  Transmission Date: 20090506
  Serious: Yes (Other)
  Sender: FDA-Public Use
  Company Number: US-BAYER-200841537NA

PATIENT
  Age: 40 Year
  Sex: Female

DRUGS (1)
  1. YAZ [Suspect]
     Indication: HAEMORRHAGE
     Route: 048

REACTIONS (3)
  - AFFECT LABILITY [None]
  - DEPRESSION [None]
  - SUICIDAL IDEATION [None]
